FAERS Safety Report 9202718 (Version 1)
Quarter: 2013Q2

REPORT INFORMATION
  Report Type: Spontaneous
  Country: GB (occurrence: GB)
  Receive Date: 20130401
  Receipt Date: 20130401
  Transmission Date: 20140414
  Serious: Yes (Hospitalization)
  Sender: FDA-Public Use
  Company Number: GB-PFIZER INC-GBWYE415910FEB05

PATIENT
  Age: 77 Year
  Sex: Male

DRUGS (6)
  1. IBUPROFEN [Suspect]
     Indication: HEADACHE
     Dosage: 2 DF, UNK
     Route: 048
     Dates: start: 20041113, end: 20041114
  2. ATENOLOL [Concomitant]
     Indication: HYPERTENSION
     Dosage: 15 MG, 1X/DAY
     Route: 048
  3. BENDROFLUMETHIAZIDE [Concomitant]
     Indication: HYPERTENSION
     Dosage: 2.5 MG, 1X/DAY
     Route: 048
  4. HYDROCORTISONE [Concomitant]
     Indication: PITUITARY INFARCTION
     Dosage: 10 MG, 3X/DAY
     Route: 048
  5. THYROXINE [Concomitant]
     Indication: HYPOTHYROIDISM
     Dosage: 100 UG, 1X/DAY
     Route: 048
  6. TRAMADOL HYDROCHLORIDE [Concomitant]
     Indication: ANALGESIC THERAPY
     Dosage: 100 MG, 4X/DAY
     Route: 048

REACTIONS (2)
  - Barrett^s oesophagus [Recovered/Resolved]
  - Haematemesis [Recovered/Resolved]
